FAERS Safety Report 12998031 (Version 1)
Quarter: 2016Q4

REPORT INFORMATION
  Report Type: Spontaneous
  Country: US (occurrence: US)
  Receive Date: 20161202
  Receipt Date: 20161202
  Transmission Date: 20170207
  Serious: Yes (Life-Threatening, Disabling)
  Sender: FDA-Public Use
  Company Number: None

PATIENT
  Age: 47 Year
  Sex: Male
  Weight: 125.55 kg

DRUGS (1)
  1. AMLODIPINE BESYLATE QUALITEST [Suspect]
     Active Substance: AMLODIPINE BESYLATE
     Indication: HYPERTENSION
     Dosage: ?          QUANTITY:90 TABLET(S);?
     Route: 048
     Dates: start: 20061201, end: 20161115

REACTIONS (5)
  - Malaise [None]
  - General physical health deterioration [None]
  - Myopathy [None]
  - Blood creatine phosphokinase increased [None]
  - Pain [None]

NARRATIVE: CASE EVENT DATE: 20101201
